FAERS Safety Report 5015722-1 (Version None)
Quarter: 2006Q2

REPORT INFORMATION
  Report Type: 
  Country: None (occurrence: None)
  Receive Date: 20060419
  Receipt Date: 20051103
  Transmission Date: 20061013
  Serious: Yes (Other)
  Sender: FDA-Public Use
  Company Number: 2005-04375

PATIENT
  Age: 83 Year
  Sex: Male

DRUGS (1)
  1. FERRLECIT [Suspect]
     Dosage: 250 MG/250ML INTRAVENOUS
     Route: 042

REACTIONS (6)
  - ABDOMINAL DISCOMFORT [None]
  - DEFAECATION URGENCY [None]
  - DRY SKIN [None]
  - HYPOTENSION [None]
  - INFUSION RELATED REACTION [None]
  - SKIN WARM [None]
